FAERS Safety Report 23568824 (Version 1)
Quarter: 2024Q1

REPORT INFORMATION
  Report Type: Report from Study
  Country: CA (occurrence: CA)
  Receive Date: 20240227
  Receipt Date: 20240227
  Transmission Date: 20240410
  Serious: Yes (Other)
  Sender: FDA-Public Use
  Company Number: CA-ABBVIE-5636976

PATIENT
  Age: 31 Year
  Sex: Male

DRUGS (2)
  1. SKYRIZI [Suspect]
     Active Substance: RISANKIZUMAB-RZAA
     Indication: Crohn^s disease
     Dosage: WEEK 0
     Route: 042
     Dates: start: 20240126, end: 20240126
  2. SKYRIZI [Suspect]
     Active Substance: RISANKIZUMAB-RZAA
     Indication: Crohn^s disease
     Dosage: WEEK 4
     Route: 042
     Dates: start: 20240223, end: 20240223

REACTIONS (10)
  - Loss of consciousness [Unknown]
  - Respiratory disorder [Unknown]
  - Infection [Unknown]
  - Loss of consciousness [Recovered/Resolved]
  - Loss of consciousness [Recovered/Resolved]
  - Hypophagia [Unknown]
  - Dehydration [Unknown]
  - Myalgia [Unknown]
  - Nasal congestion [Unknown]
  - Influenza [Unknown]

NARRATIVE: CASE EVENT DATE: 20240101
